FAERS Safety Report 8484535-0 (Version None)
Quarter: 2012Q3

REPORT INFORMATION
  Report Type: 
  Country: None (occurrence: None)
  Receive Date: 20120703
  Receipt Date: 20120621
  Transmission Date: 20120928
  Serious: Yes (Hospitalization, Other)
  Sender: FDA-Public Use
  Company Number: US-MYLANLABS-2009AC000262

PATIENT
  Age: 48 Year
  Sex: Male
  Weight: 122.47 kg

DRUGS (22)
  1. COREG [Concomitant]
  2. CARDIZEM [Concomitant]
  3. SODIUM CHLORIDE [Concomitant]
  4. FUROSEMIDE [Concomitant]
  5. HYDROCODONE [Concomitant]
  6. CORDARONE [Concomitant]
  7. LOVENOX [Concomitant]
  8. COUMADIN [Concomitant]
  9. RANITIDINE [Concomitant]
  10. DIGOXIN [Suspect]
     Route: 048
     Dates: start: 20070826, end: 20090828
  11. CELEBREX [Concomitant]
  12. METOPROLOL [Concomitant]
  13. TOPROL-XL [Concomitant]
  14. LISINOPRIL [Concomitant]
  15. PROPOXYPHENE HCL [Concomitant]
  16. LIPITOR [Concomitant]
  17. AMIODARONE HYDROCHLORIDE [Concomitant]
  18. INDOMETHACIN [Concomitant]
  19. ASPIRIN [Concomitant]
  20. ACETAMINOPHEN [Concomitant]
  21. SODIUM CHLORIDE [Concomitant]
  22. PROTONIX [Concomitant]

REACTIONS (24)
  - SLEEP APNOEA SYNDROME [None]
  - JOINT EFFUSION [None]
  - ECONOMIC PROBLEM [None]
  - ILL-DEFINED DISORDER [None]
  - ATRIAL FLUTTER [None]
  - SOMNOLENCE [None]
  - CHEST DISCOMFORT [None]
  - CARDIOMEGALY [None]
  - ENTHESOPATHY [None]
  - NAUSEA [None]
  - LIMB DISCOMFORT [None]
  - ARTHRALGIA [None]
  - EXOSTOSIS [None]
  - PAIN IN EXTREMITY [None]
  - INJURY [None]
  - TACHYPNOEA [None]
  - SNORING [None]
  - DYSPNOEA [None]
  - VOMITING [None]
  - OEDEMA PERIPHERAL [None]
  - TACHYCARDIA [None]
  - CARDIOMYOPATHY [None]
  - ATRIAL FIBRILLATION [None]
  - BONE DEFORMITY [None]
